FAERS Safety Report 8312147-8 (Version None)
Quarter: 2012Q2

REPORT INFORMATION
  Report Type: 
  Country: None (occurrence: None)
  Receive Date: 20120425
  Receipt Date: 20120418
  Transmission Date: 20120825
  Serious: Yes (Death, Other)
  Sender: FDA-Public Use
  Company Number: US-GENZYME-MOZO-1000384

PATIENT

DRUGS (2)
  1. MOZOBIL [Suspect]
     Indication: HAEMATOPOIETIC STEM CELL MOBILISATION
     Route: 065
  2. MOZOBIL [Suspect]
     Indication: MULTIPLE MYELOMA

REACTIONS (1)
  - MULTIPLE MYELOMA [None]
